FAERS Safety Report 8598868-0 (Version None)
Quarter: 2012Q3

REPORT INFORMATION
  Report Type: 
  Country: None (occurrence: None)
  Receive Date: 20120803
  Receipt Date: 20120723
  Transmission Date: 20120928
  Serious: No
  Sender: FDA-Public Use
  Company Number: CA12-0094

PATIENT
  Age: 48 Year
  Sex: Male
  Weight: 92.9874 kg

DRUGS (1)
  1. ENOXAPARIN SODIUM [Suspect]
     Indication: THROMBOSIS
     Dosage: 150MG/ONCE A DAY
     Dates: start: 20120616, end: 20120725

REACTIONS (4)
  - OEDEMA PERIPHERAL [None]
  - NO THERAPEUTIC RESPONSE [None]
  - GAIT DISTURBANCE [None]
  - PAIN IN EXTREMITY [None]
